FAERS Safety Report 16468557 (Version 1)
Quarter: 2019Q2

REPORT INFORMATION
  Report Type: Spontaneous
  Country: US (occurrence: US)
  Receive Date: 20190624
  Receipt Date: 20190624
  Transmission Date: 20190711
  Serious: Yes (Hospitalization)
  Sender: FDA-Public Use
  Company Number: US-PFIZER INC-2019263225

PATIENT
  Age: 71 Year
  Sex: Female
  Weight: 60.78 kg

DRUGS (4)
  1. XELJANZ XR [Suspect]
     Active Substance: TOFACITINIB CITRATE
     Indication: RHEUMATOID ARTHRITIS
     Dosage: 11 MG, 1X/DAY
     Route: 048
     Dates: start: 20190613
  2. METHOTREXATE. [Concomitant]
     Active Substance: METHOTREXATE
     Indication: ARTHRITIS
     Dosage: 0.8 MG, WEEKLY (ONCE A WEEK ON THURSDAY)
     Dates: start: 201905
  3. FOLIC ACID. [Concomitant]
     Active Substance: FOLIC ACID
     Indication: ARTHRITIS
     Dosage: 5 MG, 1X/DAY
     Route: 048
  4. DILANTIN [Concomitant]
     Active Substance: PHENYTOIN
     Indication: SEIZURE
     Dosage: 200 MG, 2X/DAY (100MG TWO PILLS TWICE A DAY BY MOUTH, 400MG TOTAL EACH DAY)
     Route: 048

REACTIONS (2)
  - Disease recurrence [Unknown]
  - Seizure [Unknown]

NARRATIVE: CASE EVENT DATE: 20190617
